FAERS Safety Report 8621516 (Version 2)
Quarter: 2012Q4

REPORT INFORMATION
  Report Type: Report from Study
  Country: BE (occurrence: BE)
  Receive Date: 20120619
  Receipt Date: 20120926
  Transmission Date: 20130627
  Serious: Yes (Hospitalization)
  Sender: FDA-Public Use
  Company Number: BE-PFIZER INC-2012141859

PATIENT
  Age: 77 Year
  Sex: Male

DRUGS (4)
  1. RITUXIMAB [Suspect]
     Indication: B-CELL LYMPHOMA
     Dosage: UNK
     Route: 042
     Dates: start: 20120418, end: 20120522
  2. GEMCITABINE [Suspect]
     Indication: B-CELL LYMPHOMA
     Dosage: UNK
     Route: 042
     Dates: start: 20120418, end: 20120522
  3. CYTARABINE [Suspect]
     Indication: B-CELL LYMPHOMA
     Dosage: 3384 mg, 1x/day
     Route: 042
     Dates: start: 20120602, end: 20120603
  4. CISPLATIN [Suspect]
     Indication: B-CELL LYMPHOMA
     Dosage: 170 mg, 1x/day
     Route: 042
     Dates: start: 20120601, end: 20120602

REACTIONS (1)
  - Febrile neutropenia [Recovered/Resolved]
